FAERS Safety Report 12408429 (Version 1)
Quarter: 2016Q2

REPORT INFORMATION
  Report Type: Spontaneous
  Country: TW (occurrence: TW)
  Receive Date: 20160526
  Receipt Date: 20160526
  Transmission Date: 20160815
  Serious: Yes (Death, Hospitalization, Other)
  Sender: FDA-Public Use
  Company Number: TW-CELGENEUS-TWN-2016048102

PATIENT
  Age: 82 Year
  Sex: Male

DRUGS (1)
  1. REVLIMID [Suspect]
     Active Substance: LENALIDOMIDE
     Indication: PLASMA CELL MYELOMA
     Dosage: 15 MILLIGRAM
     Route: 048
     Dates: start: 20160315

REACTIONS (5)
  - Respiratory failure [Unknown]
  - Pneumonia [Unknown]
  - Death [Fatal]
  - Pyrexia [Unknown]
  - Sepsis [Unknown]

NARRATIVE: CASE EVENT DATE: 20160430
